FAERS Safety Report 10190195 (Version 2)
Quarter: 2014Q2

REPORT INFORMATION
  Report Type: Spontaneous
  Country: US (occurrence: US)
  Receive Date: 20140522
  Receipt Date: 20140530
  Transmission Date: 20141212
  Serious: Yes (Other)
  Sender: FDA-Public Use
  Company Number: PHHY2014US060345

PATIENT
  Age: 50 Year
  Sex: Female

DRUGS (2)
  1. PAROXETINE [Suspect]
     Indication: POST-TRAUMATIC STRESS DISORDER
     Dosage: 5 MG, SECOND DOSE
  2. BUPROPION [Concomitant]

REACTIONS (8)
  - Homicidal ideation [Unknown]
  - Depression [Unknown]
  - Self esteem decreased [Unknown]
  - Mood altered [Unknown]
  - Agitation [Unknown]
  - Suicidal ideation [Unknown]
  - Insomnia [Recovered/Resolved]
  - Tachycardia [Unknown]
